FAERS Safety Report 15579670 (Version 1)
Quarter: 2018Q4

REPORT INFORMATION
  Report Type: Spontaneous
  Country: US (occurrence: US)
  Receive Date: 20181030
  Receipt Date: 20181030
  Transmission Date: 20190205
  Serious: No
  Sender: FDA-Public Use
  Company Number: None

PATIENT
  Age: 64 Year
  Sex: Male

DRUGS (7)
  1. WARFARIN [Concomitant]
     Active Substance: WARFARIN
  2. NIACIN. [Concomitant]
     Active Substance: NIACIN
  3. CYCLOSPORINE CAP MOD 50MG [Suspect]
     Active Substance: CYCLOSPORINE
     Indication: CORNEAL TRANSPLANT
     Dates: start: 20181029
  4. FOLBEE [Concomitant]
     Active Substance: CYANOCOBALAMIN\FOLIC ACID\PYRIDOXINE HYDROCHLORIDE
  5. FENOFIBRATE. [Concomitant]
     Active Substance: FENOFIBRATE
  6. ATORVASTATIN [Concomitant]
     Active Substance: ATORVASTATIN
  7. MYCOPHENOLATE MOF TAB 500MG [Suspect]
     Active Substance: MYCOPHENOLATE MOFETIL
     Indication: CORNEAL TRANSPLANT
     Dates: start: 201807

REACTIONS (1)
  - Arthritis [None]

NARRATIVE: CASE EVENT DATE: 20181029
